FAERS Safety Report 24147250 (Version 3)
Quarter: 2024Q3

REPORT INFORMATION
  Report Type: Spontaneous
  Country: JP (occurrence: JP)
  Receive Date: 20240729
  Receipt Date: 20240801
  Transmission Date: 20241016
  Serious: Yes (Life-Threatening, Other)
  Sender: MERCK
  Company Number: JP-MERCK-1011USA03553

PATIENT
  Sex: Male
  Weight: 44 kg

DRUGS (6)
  1. EMEND [Suspect]
     Active Substance: APREPITANT
     Indication: Prophylaxis of nausea and vomiting
     Dosage: 26 MAY 2010 - 26 MAY 2010 125 MG ONCE/DAY, 27 MAY  2010 - 28 MAY 2010 80MG ONCE/DAY
     Route: 048
     Dates: start: 20100526, end: 20240528
  2. TAXOTERE [Interacting]
     Active Substance: DOCETAXEL
     Indication: Tongue neoplasm malignant stage unspecified
     Dosage: 88 MG, EVERYDAY
     Route: 041
     Dates: start: 20100526, end: 20100526
  3. CISPLATIN [Concomitant]
     Active Substance: CISPLATIN
     Indication: Tongue neoplasm malignant stage unspecified
     Dosage: 75 MG, EVERYDAY
     Route: 041
     Dates: start: 20100526
  4. FLUOROURACIL [Concomitant]
     Active Substance: FLUOROURACIL
     Indication: Tongue neoplasm malignant stage unspecified
     Dosage: 600 MG/M2, EVERYDAY
     Route: 041
     Dates: start: 20100526, end: 20100530
  5. GRANISETRON [Concomitant]
     Active Substance: GRANISETRON
     Dosage: 3 MG, EVERYDAY
     Route: 041
     Dates: start: 20100526
  6. DEXAMETHASONE SODIUM PHOSPHATE [Concomitant]
     Active Substance: DEXAMETHASONE PHOSPHATE\DEXAMETHASONE SODIUM PHOSPHATE
     Dosage: UNK
     Route: 042
     Dates: start: 20100526

REACTIONS (5)
  - Septic shock [Recovered/Resolved]
  - Agranulocytosis [Recovered/Resolved]
  - Radiation skin injury [Recovering/Resolving]
  - Pharyngeal inflammation [Recovering/Resolving]
  - Drug interaction [Recovering/Resolving]

NARRATIVE: CASE EVENT DATE: 20100101
